FAERS Safety Report 5226644-5 (Version None)
Quarter: 2007Q1

REPORT INFORMATION
  Report Type: 
  Country: None (occurrence: None)
  Receive Date: 20070201
  Receipt Date: 20070123
  Transmission Date: 20070707
  Serious: Yes (Death)
  Sender: FDA-Public Use
  Company Number: US-SHR-US-2006-031744

PATIENT
  Age: 9 Month
  Sex: Male
  Weight: 5.8 kg

DRUGS (2)
  1. MAGNEVIST [Suspect]
     Dosage: 1 ML, 1 DOSE
     Dates: start: 20050701, end: 20050701
  2. ANAESTHETICS [Suspect]
     Dates: start: 20050701, end: 20050701

REACTIONS (3)
  - CONTRAST MEDIA REACTION [None]
  - DELAYED RECOVERY FROM ANAESTHESIA [None]
  - INCORRECT DOSE ADMINISTERED [None]
